FAERS Safety Report 5873163-9 (Version None)
Quarter: 2008Q3

REPORT INFORMATION
  Report Type: 
  Country: None (occurrence: None)
  Receive Date: 20080908
  Receipt Date: 20070114
  Transmission Date: 20090109
  Serious: No
  Sender: FDA-Public Use
  Company Number: US-BAYER-200831025NA

PATIENT

DRUGS (1)
  1. AVELOX [Suspect]
     Indication: SINUS DISORDER
     Route: 048

REACTIONS (1)
  - MYALGIA [None]
